FAERS Safety Report 4497124-X (Version None)
Quarter: 2004Q3

REPORT INFORMATION
  Report Type: 
  Country: None (occurrence: None)
  Receive Date: 20040927
  Receipt Date: 20040609
  Transmission Date: 20050211
  Serious: No
  Sender: FDA-Public Use
  Company Number: USA040568604

PATIENT
  Age: 24 Year
  Sex: Male

DRUGS (2)
  1. STRATTERA [Suspect]
     Indication: ATTENTION DEFICIT/HYPERACTIVITY DISORDER
     Dosage: 25 MG/1 DAY
     Dates: start: 20040417
  2. RITALIN LA [Concomitant]

REACTIONS (5)
  - ANXIETY [None]
  - BACK INJURY [None]
  - CRYING [None]
  - INSOMNIA [None]
  - SUICIDAL IDEATION [None]
